FAERS Safety Report 8439291-9 (Version None)
Quarter: 2012Q2

REPORT INFORMATION
  Report Type: 
  Country: None (occurrence: None)
  Receive Date: 20120615
  Receipt Date: 20120612
  Transmission Date: 20120825
  Serious: Yes (Other)
  Sender: FDA-Public Use
  Company Number: PHEH2012US004498

PATIENT
  Sex: Female

DRUGS (8)
  1. THYROID THERAPY [Concomitant]
     Indication: THYROID DISORDER
     Dosage: UNK UKN, UNK
  2. CYMBALTA [Concomitant]
     Dosage: UNK UKN, UNK
  3. VITAMIN D [Concomitant]
     Dosage: UNK UKN, UNK
  4. DIOVAN [Suspect]
     Indication: BLOOD PRESSURE
     Dosage: 160 MG, QD
  5. ATENOLOL [Concomitant]
     Dosage: UNK UKN, UNK
  6. DIAZEPAM [Concomitant]
     Dosage: UNK UKN, UNK
  7. CALCIUM [Concomitant]
     Dosage: UNK UKN, UNK
  8. ANTIHYPERTENSIVE DRUGS [Suspect]
     Indication: HYPERTENSION
     Dosage: UNK UKN, UNK

REACTIONS (1)
  - CATARACT [None]
